FAERS Safety Report 6261304-3 (Version None)
Quarter: 2009Q3

REPORT INFORMATION
  Report Type: 
  Country: None (occurrence: None)
  Receive Date: 20090709
  Receipt Date: 20090701
  Transmission Date: 20100115
  Serious: Yes (Hospitalization)
  Sender: FDA-Public Use
  Company Number: GB-ROCHE-638053

PATIENT
  Sex: Female
  Weight: 70.2 kg

DRUGS (7)
  1. CAPECITABINE [Suspect]
     Indication: NEUROENDOCRINE CARCINOMA
     Dosage: ROUTE REPORTED AS ^O^.  LAST DATE PRIOR TO SAE NOT KNOWN.
     Route: 048
     Dates: start: 20071105, end: 20080116
  2. OMEPRAZOLE [Concomitant]
  3. ETORICOXIB [Concomitant]
  4. CALCICHEW [Concomitant]
     Dosage: DRUG NAME REPORTED AS CALCICHEW TABLETS.
  5. PROCTOSEDYL [Concomitant]
  6. METOCLOPRAMIDE [Concomitant]
  7. AMITRIPTYLINE [Concomitant]

REACTIONS (1)
  - INTESTINAL OBSTRUCTION [None]
